FAERS Safety Report 4352825-9 (Version None)
Quarter: 2004Q2

REPORT INFORMATION
  Report Type: 
  Country: None (occurrence: None)
  Receive Date: 20040429
  Receipt Date: 20040331
  Transmission Date: 20050107
  Serious: Yes (Death, Hospitalization)
  Sender: FDA-Public Use
  Company Number: ATO-04-0308

PATIENT
  Age: 69 Year
  Sex: Male
  Weight: 73.4827 kg

DRUGS (13)
  1. TRISENOX [Suspect]
     Indication: MYELODYSPLASTIC SYNDROME
     Dosage: 18.2 MG (0.25 MG/KG, 5X/WK, 2WK ON 2WK OFF), IVI
     Route: 042
     Dates: start: 20040308, end: 20040319
  2. SIMVASTATIN [Concomitant]
  3. GLUCOPHAGE [Concomitant]
  4. FENOFIBRATE [Concomitant]
  5. PERGOLIDE MESYLATE [Concomitant]
  6. EZETIMIBE [Concomitant]
  7. PRAMIPEXOLE [Concomitant]
  8. PROPOXYPHENE [Concomitant]
  9. FOLIC ACID [Concomitant]
  10. VITAMIN B6 [Concomitant]
  11. VITAMIN B-12 [Concomitant]
  12. LEVOFLOXACIN [Concomitant]
  13. SOLU-MEDROL [Concomitant]

REACTIONS (4)
  - ACUTE LEUKAEMIA [None]
  - HYPOXIA [None]
  - PNEUMONIA [None]
  - RESPIRATORY DISTRESS [None]
